FAERS Safety Report 24150980 (Version 1)
Quarter: 2024Q3

REPORT INFORMATION
  Report Type: Spontaneous
  Country: US (occurrence: US)
  Receive Date: 20240730
  Receipt Date: 20240730
  Transmission Date: 20241016
  Serious: No
  Sender: NOVARTIS
  Company Number: US-002147023-NVSC2024US154901

PATIENT
  Age: 63 Year
  Sex: Female
  Weight: 71.6 kg

DRUGS (1)
  1. KISQALI [Suspect]
     Active Substance: RIBOCICLIB
     Indication: Breast cancer female
     Dosage: TAKE 3 TABS (600MG TOTAL) 21 DAYS ON 7 DAYS OFF
     Route: 048
     Dates: start: 202407

REACTIONS (2)
  - Insomnia [Unknown]
  - Anxiety [Unknown]
